FAERS Safety Report 9912600 (Version 3)
Quarter: 2014Q1

REPORT INFORMATION
  Report Type: Report from Study
  Country: CA (occurrence: CA)
  Receive Date: 20140220
  Receipt Date: 20140310
  Transmission Date: 20141002
  Serious: Yes (Other)
  Sender: FDA-Public Use
  Company Number: CA-ROCHE-1347502

PATIENT
  Age: 62 Year
  Sex: Female
  Weight: 64.86 kg

DRUGS (10)
  1. ACTEMRA [Suspect]
     Indication: POLYMYALGIA RHEUMATICA
     Route: 042
     Dates: start: 20130403, end: 20140113
  2. ACTEMRA [Suspect]
     Indication: TEMPORAL ARTERITIS
  3. TRIATEC (CODEINE PHOSPHATE/PARACETAMOL) [Concomitant]
  4. PANTOLOC [Concomitant]
     Dosage: TAKEN FOR OVER ONE YEAR (~2013)
     Route: 048
  5. FENTANYL [Concomitant]
  6. CARBOCAL [Concomitant]
  7. MEDROL [Concomitant]
     Dosage: TAKEN FOR THE PAST 15 YEARS (~1999)
     Route: 048
  8. PROLIA [Concomitant]
     Dosage: TAKEN FOR MANY YEARS
     Route: 058
  9. OLMETEC [Concomitant]
     Indication: HYPERTENSION
     Dosage: TAKEN FOR THE PAST YEAR (~2013)
     Route: 065
  10. PREDNISONE [Concomitant]

REACTIONS (8)
  - Haematuria [Recovered/Resolved]
  - Haematochezia [Recovered/Resolved]
  - Ecchymosis [Recovered/Resolved]
  - Dyspnoea [Recovered/Resolved]
  - Chills [Unknown]
  - Arthralgia [Unknown]
  - Polymyalgia rheumatica [Unknown]
  - Drug ineffective [Unknown]
